FAERS Safety Report 24079027 (Version 3)
Quarter: 2024Q4

REPORT INFORMATION
  Report Type: Spontaneous
  Country: FR (occurrence: FR)
  Receive Date: 20240711
  Receipt Date: 20241015
  Transmission Date: 20250114
  Serious: Yes (Death)
  Sender: GRIFOLS
  Company Number: FR-IGSA-BIG0029617

PATIENT
  Age: 63 Year
  Sex: Female
  Weight: 63 kg

DRUGS (17)
  1. GAMUNEX [Suspect]
     Active Substance: HUMAN IMMUNOGLOBULIN G
     Indication: Transplant rejection
     Dosage: 65 GRAM
     Route: 042
     Dates: start: 202406, end: 202406
  2. GAMUNEX [Suspect]
     Active Substance: HUMAN IMMUNOGLOBULIN G
     Indication: Off label use
     Dosage: 65 GRAM
     Route: 042
  3. GAMUNEX [Suspect]
     Active Substance: HUMAN IMMUNOGLOBULIN G
     Dosage: 65 GRAM
     Route: 042
  4. GAMUNEX [Suspect]
     Active Substance: HUMAN IMMUNOGLOBULIN G
     Dosage: 65 GRAM
     Route: 042
  5. CALCIUM PHOSPHATE, DIBASIC, ANHYDROUS\MAGNESIUM GLYCEROPHOSPHATE\PHOSP [Concomitant]
     Active Substance: CALCIUM PHOSPHATE, DIBASIC, ANHYDROUS\MAGNESIUM GLYCEROPHOSPHATE\PHOSPHORIC ACID\SODIUM PHOSPHATE, D
  6. PREDNISONE [Concomitant]
     Active Substance: PREDNISONE
  7. PANTOPRAZOLE [Concomitant]
     Active Substance: PANTOPRAZOLE
  8. MAGNESIUM CARBONATE [Concomitant]
     Active Substance: MAGNESIUM CARBONATE
  9. CHOLECALCIFEROL [Concomitant]
     Active Substance: CHOLECALCIFEROL
  10. BACTRIM [Concomitant]
     Active Substance: SULFAMETHOXAZOLE\TRIMETHOPRIM
  11. LEUCOVORIN CALCIUM [Concomitant]
     Active Substance: LEUCOVORIN CALCIUM
  12. CELLCEPT [Concomitant]
     Active Substance: MYCOPHENOLATE MOFETIL
  13. CALCIDOSE [Concomitant]
  14. BISOPROLOL FUMARATE [Concomitant]
     Active Substance: BISOPROLOL FUMARATE
  15. LEVOTHYROXINE [Concomitant]
     Active Substance: LEVOTHYROXINE
  16. TACROLIMUS [Concomitant]
     Active Substance: TACROLIMUS
  17. AMLODIPINE BESYLATE [Concomitant]
     Active Substance: AMLODIPINE BESYLATE

REACTIONS (1)
  - Sudden death [Fatal]

NARRATIVE: CASE EVENT DATE: 20240607
